FAERS Safety Report 5504788-8 (Version None)
Quarter: 2007Q4

REPORT INFORMATION
  Report Type: 
  Country: None (occurrence: None)
  Receive Date: 20071031
  Receipt Date: 20071031
  Transmission Date: 20080405
  Serious: No
  Sender: FDA-Public Use
  Company Number: None

PATIENT
  Sex: Female

DRUGS (5)
  1. ESTRADIOL [Suspect]
     Indication: MENOPAUSAL SYMPTOMS
     Dosage: ONE PO DAILY
     Route: 048
     Dates: start: 20070101, end: 20070401
  2. SYNTHROID [Concomitant]
  3. IMITREX [Concomitant]
  4. FIORICET [Concomitant]
  5. OXYCODONE HCL [Concomitant]

REACTIONS (2)
  - HOT FLUSH [None]
  - THERAPEUTIC RESPONSE UNEXPECTED WITH DRUG SUBSTITUTION [None]
